FAERS Safety Report 24559244 (Version 1)
Quarter: 2024Q4

REPORT INFORMATION
  Report Type: Other
  Country: MA (occurrence: MA)
  Receive Date: 20241029
  Receipt Date: 20241029
  Transmission Date: 20250114
  Serious: Yes (Hospitalization)
  Sender: BAYSHORE PHARMACEUTICALS LLC
  Company Number: MA-BP-2024-110476

PATIENT
  Age: 1 Day
  Sex: Female
  Weight: 3.8 kg

DRUGS (1)
  1. KETOTIFEN [Suspect]
     Active Substance: KETOTIFEN
     Route: 064

REACTIONS (2)
  - Peliosis hepatis [Recovering/Resolving]
  - Foetal exposure during pregnancy [Recovering/Resolving]
